FAERS Safety Report 10177071 (Version 1)
Quarter: 2014Q2

REPORT INFORMATION
  Report Type: Spontaneous
  Country: US (occurrence: None)
  Receive Date: 20140515
  Receipt Date: 20140515
  Transmission Date: 20141212
  Serious: No
  Sender: FDA-Public Use
  Company Number: None

PATIENT
  Age: 66 Year
  Sex: Female
  Weight: 52.3 kg

DRUGS (2)
  1. CARBOPLATIN [Suspect]
     Dates: end: 20140408
  2. PACLITAXEL (TAXOL) [Suspect]
     Dates: end: 20140408

REACTIONS (7)
  - Hypokalaemia [None]
  - Confusional state [None]
  - Cognitive disorder [None]
  - Incorrect dose administered [None]
  - Thrombocytopenia [None]
  - Pancreatic carcinoma metastatic [None]
  - Malignant neoplasm progression [None]
